FAERS Safety Report 4501871-0 (Version None)
Quarter: 2004Q4

REPORT INFORMATION
  Report Type: 
  Country: None (occurrence: None)
  Receive Date: 20041115
  Receipt Date: 20041115
  Transmission Date: 20050328
  Serious: Yes (Hospitalization, Other)
  Sender: FDA-Public Use
  Company Number: None

PATIENT
  Sex: Female
  Weight: 50.3493 kg

DRUGS (2)
  1. ACIPHEX [Suspect]
     Indication: GASTROOESOPHAGEAL REFLUX DISEASE
     Dosage: ONE TABLET ONCE PER DAY ORAL
     Route: 048
     Dates: start: 20040701, end: 20040915
  2. LEVAQUIN [Suspect]
     Indication: SKIN INFECTION
     Dosage: ONE TABLET ONCE PER DAY ORAL
     Route: 048
     Dates: start: 20040815, end: 20040826

REACTIONS (8)
  - ANOREXIA [None]
  - ANXIETY [None]
  - ARTHRALGIA [None]
  - ASTHENIA [None]
  - BONE PAIN [None]
  - FATIGUE [None]
  - MUSCLE TWITCHING [None]
  - MYALGIA [None]
